FAERS Safety Report 8391964-2 (Version None)
Quarter: 2012Q2

REPORT INFORMATION
  Report Type: 
  Country: None (occurrence: None)
  Receive Date: 20120529
  Receipt Date: 20120523
  Transmission Date: 20120825
  Serious: Yes (Other)
  Sender: FDA-Public Use
  Company Number: NL-GLAXOSMITHKLINE-B0804128A

PATIENT
  Sex: Female
  Weight: 60 kg

DRUGS (7)
  1. IRBESARTAN [Concomitant]
     Dosage: 150MG PER DAY
     Route: 048
     Dates: start: 20080101
  2. TRIAMCINOLONE ACETONIDE [Concomitant]
     Route: 065
     Dates: start: 20100101
  3. FLUTICASONE PROPIONATE [Suspect]
     Indication: PRODUCT USED FOR UNKNOWN INDICATION
     Dosage: 250MCG TWICE PER DAY
     Route: 055
     Dates: start: 20120314, end: 20120328
  4. FOLIC ACID [Concomitant]
     Dosage: .5MG PER DAY
     Route: 048
  5. TAMOXIFEN CITRATE [Concomitant]
     Dosage: 20MG PER DAY
     Route: 048
     Dates: start: 20100101
  6. POVIDONE IODINE [Concomitant]
     Dosage: 1DROP SIX TIMES PER DAY
     Route: 047
     Dates: start: 20120405
  7. OMEPRAZOLE MAGNESIUM [Concomitant]
     Dosage: 10MG PER DAY
     Route: 048
     Dates: start: 20080101

REACTIONS (2)
  - SUICIDAL IDEATION [None]
  - NIGHTMARE [None]
